FAERS Safety Report 7571070-7 (Version None)
Quarter: 2011Q2

REPORT INFORMATION
  Report Type: 
  Country: None (occurrence: None)
  Receive Date: 20110624
  Receipt Date: 20110616
  Transmission Date: 20111010
  Serious: Yes (Other)
  Sender: FDA-Public Use
  Company Number: US-PFIZER INC-2011127685

PATIENT
  Sex: Female
  Weight: 90.7 kg

DRUGS (4)
  1. PREMPRO [Suspect]
     Indication: HORMONE REPLACEMENT THERAPY
     Dosage: 0.3/1.5 MG, DAILY
     Route: 048
     Dates: start: 20110520
  2. BENICAR [Concomitant]
     Indication: HYPERTENSION
     Dosage: UNK
  3. SIMVASTATIN [Concomitant]
     Indication: BLOOD CHOLESTEROL INCREASED
     Dosage: UNK
  4. PAXIL [Concomitant]
     Indication: NERVOUSNESS
     Dosage: UNK

REACTIONS (5)
  - MIGRAINE [None]
  - BLINDNESS [None]
  - VISUAL IMPAIRMENT [None]
  - HYPERHIDROSIS [None]
  - TREMOR [None]
